FAERS Safety Report 8327609-7 (Version None)
Quarter: 2012Q2

REPORT INFORMATION
  Report Type: 
  Country: None (occurrence: None)
  Receive Date: 20120502
  Receipt Date: 20110914
  Transmission Date: 20120825
  Serious: Yes (Other)
  Sender: FDA-Public Use
  Company Number: CA-BAYER-2011-086541

PATIENT
  Age: 44 Year
  Sex: Female

DRUGS (1)
  1. BETASERON [Suspect]
     Dosage: 250 ?G, QOD
     Route: 058

REACTIONS (4)
  - INJECTION SITE CALCIFICATION [None]
  - INJECTION SITE ATROPHY [None]
  - INFLAMMATION [None]
  - PANNICULITIS [None]
